FAERS Safety Report 6004293-9 (Version None)
Quarter: 2008Q4

REPORT INFORMATION
  Report Type: 
  Country: None (occurrence: None)
  Receive Date: 20081215
  Receipt Date: 20081215
  Transmission Date: 20090506
  Serious: Yes (Hospitalization, Other)
  Sender: FDA-Public Use
  Company Number: None

PATIENT
  Age: 48 Year
  Sex: Female
  Weight: 74.8435 kg

DRUGS (2)
  1. LUPRON [Suspect]
     Dosage: MONTHLY SHOTS
     Dates: start: 20070901, end: 20071001
  2. LUPRON [Suspect]
     Dosage: MONTHLY SHOTS
     Dates: start: 20071001, end: 20071101

REACTIONS (2)
  - ARTHRALGIA [None]
  - PAIN [None]
